FAERS Safety Report 18171452 (Version 1)
Quarter: 2020Q3

REPORT INFORMATION
  Report Type: Spontaneous
  Country: US (occurrence: US)
  Receive Date: 20200819
  Receipt Date: 20200819
  Transmission Date: 20201103
  Serious: No
  Sender: FDA-Public Use
  Company Number: US-ENDO PHARMACEUTICALS INC-2019-108850

PATIENT
  Age: 32 Year
  Sex: Male

DRUGS (1)
  1. MEGACE ES [Suspect]
     Active Substance: MEGESTROL ACETATE
     Indication: UNDERWEIGHT
     Dosage: UNK UNKNOWN, UNKNOWN
     Route: 065

REACTIONS (2)
  - Blood testosterone decreased [Unknown]
  - Off label use [Unknown]

NARRATIVE: CASE EVENT DATE: 20191010
